FAERS Safety Report 7957276-3 (Version None)
Quarter: 2011Q4

REPORT INFORMATION
  Report Type: 
  Country: None (occurrence: None)
  Receive Date: 20111205
  Receipt Date: 20111125
  Transmission Date: 20120403
  Serious: Yes (Hospitalization)
  Sender: FDA-Public Use
  Company Number: FR-SANOFI-AVENTIS-2011SA078459

PATIENT
  Age: 67 Year
  Sex: Female

DRUGS (14)
  1. CORDARONE [Concomitant]
     Indication: ATRIAL FIBRILLATION
     Route: 048
  2. BUDESONIDE/FORMOTEROL FUMARATE [Concomitant]
  3. BISOPROLOL FUMARATE [Concomitant]
     Route: 048
  4. LEVOFLOXACIN [Concomitant]
     Dates: start: 20110922
  5. NOVORAPID [Concomitant]
     Indication: TYPE 2 DIABETES MELLITUS
  6. RAMIPRIL [Concomitant]
     Route: 048
  7. FUROSEMIDE [Concomitant]
     Route: 048
  8. ROCEPHIN [Concomitant]
     Dates: start: 20110922
  9. LASIX [Suspect]
     Route: 042
  10. ROSUVASTATIN CALCIUM [Concomitant]
     Indication: DYSLIPIDAEMIA
     Route: 048
  11. ASPIRIN [Concomitant]
     Route: 048
  12. LANTUS [Concomitant]
     Indication: TYPE 2 DIABETES MELLITUS
  13. PREVISCAN [Concomitant]
     Indication: ATRIAL FIBRILLATION
     Route: 048
  14. AMLODIPINE [Concomitant]
     Route: 048

REACTIONS (1)
  - ANURIA [None]
